FAERS Safety Report 11994222 (Version 2)
Quarter: 2019Q4

REPORT INFORMATION
  Report Type: Spontaneous
  Country: US (occurrence: US)
  Receive Date: 20160203
  Receipt Date: 20191213
  Transmission Date: 20200122
  Serious: No
  Sender: FDA-Public Use
  Company Number: US-UCBSA-2015029496

PATIENT
  Sex: Female

DRUGS (3)
  1. VIMPAT [Suspect]
     Active Substance: LACOSAMIDE
     Indication: SEIZURE
     Dosage: UNKNOWN DOSE
  2. KEPPRA [Suspect]
     Active Substance: LEVETIRACETAM
     Indication: SEIZURE
     Dosage: UNKNOWN DOSE
  3. VIMPAT [Suspect]
     Active Substance: LACOSAMIDE
     Dosage: INCREASED DOSE

REACTIONS (4)
  - Aggression [Recovered/Resolved]
  - Mood swings [Recovered/Resolved]
  - Irritability [Unknown]
  - Drug ineffective [Unknown]
